FAERS Safety Report 5521144-7 (Version None)
Quarter: 2007Q4

REPORT INFORMATION
  Report Type: 
  Country: None (occurrence: None)
  Receive Date: 20071119
  Receipt Date: 20071113
  Transmission Date: 20080405
  Serious: Yes (Death, Life-Threatening, Hospitalization)
  Sender: FDA-Public Use
  Company Number: FR-AVENTIS-200713606FR

PATIENT
  Age: 78 Year
  Sex: Female
  Weight: 85 kg

DRUGS (6)
  1. TAXOTERE [Suspect]
     Route: 042
     Dates: start: 20061219, end: 20061219
  2. GEMCITABINE [Suspect]
     Route: 042
     Dates: start: 20061212, end: 20061212
  3. GEMCITABINE [Suspect]
     Route: 042
     Dates: start: 20061219, end: 20061219
  4. ADRIAMYCIN PFS [Concomitant]
     Dates: start: 20061001, end: 20061101
  5. CIFLOX                             /00697201/ [Concomitant]
  6. ROCEPHIN [Concomitant]

REACTIONS (5)
  - GASTROINTESTINAL HAEMORRHAGE [None]
  - MUCOSAL INFLAMMATION [None]
  - RESPIRATORY FAILURE [None]
  - THROMBOCYTOPENIA [None]
  - VULVOVAGINAL MYCOTIC INFECTION [None]
